FAERS Safety Report 7222542-6 (Version None)
Quarter: 2011Q1

REPORT INFORMATION
  Report Type: 
  Country: None (occurrence: None)
  Receive Date: 20110112
  Receipt Date: 20101230
  Transmission Date: 20110831
  Serious: Yes (Hospitalization)
  Sender: FDA-Public Use
  Company Number: FR-PFIZER INC-2011007036

PATIENT
  Age: 27 Year
  Sex: Female

DRUGS (4)
  1. DILTIAZEM HCL [Suspect]
     Dosage: 1 DF, 1X/DAY
     Route: 048
  2. MYFORTIC [Suspect]
     Indication: PROPHYLAXIS AGAINST TRANSPLANT REJECTION
     Dosage: 2 DF, DAILY
     Route: 048
     Dates: start: 20080801, end: 20100223
  3. PANTOPRAZOLE [Suspect]
     Dosage: 1 DF, 1X/DAY
     Route: 048
     Dates: start: 20080801
  4. PROGRAF [Suspect]
     Indication: PROPHYLAXIS AGAINST TRANSPLANT REJECTION
     Dosage: 3.5 MG, 2X/DAY
     Route: 048
     Dates: start: 20080801

REACTIONS (9)
  - DIARRHOEA [None]
  - VOMITING [None]
  - CYTOMEGALOVIRUS INFECTION [None]
  - PYREXIA [None]
  - URINARY TRACT INFECTION [None]
  - LEUKOPENIA [None]
  - EPSTEIN-BARR VIRUS TEST POSITIVE [None]
  - NAUSEA [None]
  - ABDOMINAL PAIN [None]
